FAERS Safety Report 4421490-4 (Version None)
Quarter: 2004Q3

REPORT INFORMATION
  Report Type: 
  Country: None (occurrence: None)
  Receive Date: 20040709
  Receipt Date: 20030912
  Transmission Date: 20050211
  Serious: Yes (Other)
  Sender: FDA-Public Use
  Company Number: US-SHR-03-014040

PATIENT
  Age: 36 Year
  Sex: Female
  Weight: 66.5 kg

DRUGS (4)
  1. ULTRAVIST 300 [Suspect]
     Indication: COMPUTERISED TOMOGRAM
     Dosage: 150 ML, 1 DOSE AT 5 ML/SECOND, INTRAVENOUS
     Route: 042
     Dates: start: 20030807, end: 20030807
  2. PROTONIX [Concomitant]
  3. EFFEXOR [Concomitant]
  4. SYNTHROID [Concomitant]

REACTIONS (4)
  - ERYTHEMA [None]
  - RASH [None]
  - URTICARIA [None]
  - WHEEZING [None]
